FAERS Safety Report 7460037-5 (Version None)
Quarter: 2011Q2

REPORT INFORMATION
  Report Type: 
  Country: None (occurrence: None)
  Receive Date: 20110505
  Receipt Date: 20110504
  Transmission Date: 20111010
  Serious: Yes (Hospitalization)
  Sender: FDA-Public Use
  Company Number: IT-ABBOTT-10P-083-0654875-00

PATIENT
  Sex: Female

DRUGS (4)
  1. PAROXETINE HCL [Suspect]
     Indication: SUICIDE ATTEMPT
     Dosage: DAILY
     Route: 048
     Dates: start: 20100604, end: 20100604
  2. HALDOL [Suspect]
     Indication: SUICIDE ATTEMPT
     Dosage: DAILY
     Route: 048
     Dates: start: 20100604, end: 20100604
  3. SAMYR [Suspect]
     Indication: SUICIDE ATTEMPT
     Dosage: 6 UNITS
     Route: 048
     Dates: start: 20100604, end: 20100604
  4. AKINETON [Suspect]
     Indication: SUICIDE ATTEMPT
     Dosage: 30 UNITS
     Route: 048
     Dates: start: 20100604, end: 20100604

REACTIONS (2)
  - SOPOR [None]
  - MYDRIASIS [None]
